FAERS Safety Report 24211355 (Version 1)
Quarter: 2024Q3

REPORT INFORMATION
  Report Type: Spontaneous
  Country: US (occurrence: None)
  Receive Date: 20240813
  Receipt Date: 20240813
  Transmission Date: 20241016
  Serious: No
  Sender: Public
  Company Number: None

PATIENT
  Age: 55 Year
  Sex: Female

DRUGS (4)
  1. TROPICAMIDE [Suspect]
     Active Substance: TROPICAMIDE
     Indication: Ophthalmological examination
     Dates: start: 20240620, end: 20240620
  2. ALTAFLUOR [Suspect]
     Active Substance: BENOXINATE HYDROCHLORIDE\FLUORESCEIN SODIUM
     Indication: Ophthalmological examination
     Dates: start: 20240620, end: 20240620
  3. TUMS [Concomitant]
     Active Substance: CALCIUM CARBONATE
  4. PEPCID [Concomitant]
     Active Substance: FAMOTIDINE

REACTIONS (6)
  - Wrong technique in product usage process [None]
  - Wrong technique in device usage process [None]
  - Device calibration failure [None]
  - Eye pain [None]
  - Dry eye [None]
  - Abnormal sensation in eye [None]

NARRATIVE: CASE EVENT DATE: 20240620
